FAERS Safety Report 5806527-X (Version None)
Quarter: 2008Q3

REPORT INFORMATION
  Report Type: 
  Country: None (occurrence: None)
  Receive Date: 20080710
  Receipt Date: 20080703
  Transmission Date: 20090109
  Serious: Yes (Hospitalization)
  Sender: FDA-Public Use
  Company Number: IL-BOEHRINGER INGELHEIM GMBH, GERMANY-2008-BP-10292RO

PATIENT
  Age: 80 Year
  Sex: Male

DRUGS (9)
  1. CLARITHROMYCIN [Suspect]
     Indication: HELICOBACTER INFECTION
  2. AMLODIPINE [Suspect]
  3. FUROSEMIDE [Suspect]
  4. CITALOPRAM HYDROBROMIDE [Suspect]
  5. REPAGLINIDE [Suspect]
     Indication: TYPE 2 DIABETES MELLITUS
  6. ASPIRIN [Suspect]
  7. OMEPRAZOLE [Suspect]
  8. AMOXICILLIN [Suspect]
     Indication: HELICOBACTER INFECTION
  9. GLUCOSE [Concomitant]
     Indication: HYPOGLYCAEMIA
     Route: 042

REACTIONS (2)
  - DRUG INTERACTION [None]
  - HYPOGLYCAEMIA [None]
